FAERS Safety Report 15335285 (Version 1)
Quarter: 2018Q3

REPORT INFORMATION
  Report Type: Spontaneous
  Country: US (occurrence: US)
  Receive Date: 20180827
  Receipt Date: 20180827
  Transmission Date: 20181010
  Serious: No
  Sender: FDA-Public Use
  Company Number: None

PATIENT
  Age: 67 Year
  Sex: Female

DRUGS (11)
  1. LISONPRIL [Concomitant]
     Active Substance: LISINOPRIL
  2. CLOBETASOL [Concomitant]
     Active Substance: CLOBETASOL
  3. NORVASC [Concomitant]
     Active Substance: AMLODIPINE BESYLATE
  4. REBIF REBIDOSE [Suspect]
     Active Substance: INTERFERON BETA-1A
  5. HALOBETASOL [Concomitant]
     Active Substance: HALOBETASOL PROPIONATE
  6. GLIMEPIRIDE. [Concomitant]
     Active Substance: GLIMEPIRIDE
  7. METFORMIN [Concomitant]
     Active Substance: METFORMIN HYDROCHLORIDE
  8. PREDNISONE. [Concomitant]
     Active Substance: PREDNISONE
  9. TROSPLUM [Concomitant]
  10. PENTOXIFYLINE [Concomitant]
  11. GABAPENTIN. [Concomitant]
     Active Substance: GABAPENTIN

REACTIONS (1)
  - Injection site bruising [None]

NARRATIVE: CASE EVENT DATE: 20180823
